FAERS Safety Report 7502471-0 (Version None)
Quarter: 2011Q2

REPORT INFORMATION
  Report Type: 
  Country: None (occurrence: None)
  Receive Date: 20110525
  Receipt Date: 20110513
  Transmission Date: 20111010
  Serious: Yes (Hospitalization)
  Sender: FDA-Public Use
  Company Number: US-BRISTOL-MYERS SQUIBB COMPANY-15177082

PATIENT
  Age: 55 Year
  Sex: Female
  Weight: 74 kg

DRUGS (15)
  1. CITALOPRAM HYDROBROMIDE [Concomitant]
     Indication: ANXIETY
     Dosage: STARTED PRIOR TO 2010
     Route: 048
  2. MORPHINE SULFATE [Concomitant]
     Indication: PAIN
     Route: 048
     Dates: start: 20100406
  3. MEGACE [Concomitant]
     Indication: DECREASED APPETITE
     Route: 048
     Dates: start: 20100422
  4. CARBOPLATIN [Suspect]
     Indication: NON-SMALL CELL LUNG CANCER
     Dosage: INT ON 22JUN10
     Route: 042
     Dates: start: 20100525, end: 20100615
  5. EMLA [Concomitant]
     Indication: ANALGESIC THERAPY
     Dosage: 1DF= ONE APPLICATION
     Route: 061
     Dates: start: 20100525
  6. CETUXIMAB [Suspect]
     Indication: NON-SMALL CELL LUNG CANCER
     Dosage: RECENT INF:15JUN2010 INT ON 22JUN10
     Route: 042
     Dates: start: 20100525, end: 20100615
  7. PANTOPRAZOLE [Concomitant]
     Indication: GASTROOESOPHAGEAL REFLUX DISEASE
     Route: 048
     Dates: start: 20100422
  8. MAGIC MOUTHWASH [Concomitant]
     Indication: MUCOSAL INFLAMMATION
     Dosage: AS NEEDED
     Route: 048
     Dates: start: 20100525
  9. CIPROFLOXACIN [Concomitant]
     Indication: RESPIRATORY TRACT INFECTION
     Route: 048
     Dates: start: 20100519, end: 20100526
  10. ATENOLOL [Concomitant]
     Indication: HYPERTENSION
     Dosage: STARTED PRIOR TO 2010
     Route: 048
  11. OXYCODONE HCL [Concomitant]
     Indication: PAIN
     Dosage: AS NEEDED
     Route: 048
     Dates: start: 20100422
  12. PACLITAXEL [Suspect]
     Indication: NON-SMALL CELL LUNG CANCER
     Dosage: RECENT INF:15JUN2010 INT ON 22JUN10
     Route: 042
     Dates: start: 20100525, end: 20100615
  13. PROCHLORPERAZINE TAB [Concomitant]
     Indication: NAUSEA
     Dosage: AS NEEDED
     Route: 048
     Dates: start: 20100525
  14. LEVAQUIN [Concomitant]
     Indication: RESPIRATORY TRACT INFECTION
     Route: 048
     Dates: start: 20100517, end: 20100525
  15. COMBIVENT [Concomitant]
     Indication: PULMONARY CONGESTION
     Dosage: 1DF=1 PUFF
     Route: 055
     Dates: start: 20100422

REACTIONS (1)
  - PANCYTOPENIA [None]
